FAERS Safety Report 7276630-9 (Version None)
Quarter: 2011Q1

REPORT INFORMATION
  Report Type: 
  Country: None (occurrence: None)
  Receive Date: 20110204
  Receipt Date: 20101217
  Transmission Date: 20110831
  Serious: Yes (Other)
  Sender: FDA-Public Use
  Company Number: US-BAYER-201024238NA

PATIENT
  Sex: Female

DRUGS (13)
  1. ZYRTEC [Concomitant]
  2. DOCUSATE [Concomitant]
  3. YAZ [Suspect]
     Indication: ACNE
  4. YASMIN [Suspect]
     Indication: ACNE
  5. SERTRALINE [Concomitant]
     Dosage: 50 MG, UNK
  6. UNCODEABLE ^UNCLASSIFIABLE^ [Concomitant]
  7. NASACORT [Concomitant]
  8. FISH OIL [Concomitant]
  9. ALBUTEROL [Concomitant]
  10. OCELLA [Suspect]
     Indication: ACNE
  11. MULTI-VITAMIN [Concomitant]
  12. WELLBUTRIN XL [Concomitant]
     Dosage: 450 MG, UNK
  13. ATENOLOL [Concomitant]
     Dosage: 15 MG, UNK

REACTIONS (2)
  - CHOLELITHIASIS [None]
  - CHOLECYSTITIS [None]
